FAERS Safety Report 5156715-3 (Version None)
Quarter: 2006Q4

REPORT INFORMATION
  Report Type: 
  Country: None (occurrence: None)
  Receive Date: 20061115
  Receipt Date: 20061030
  Transmission Date: 20070319
  Serious: Yes (Other)
  Sender: FDA-Public Use
  Company Number: 231886

PATIENT
  Age: 40 Year
  Sex: Male

DRUGS (4)
  1. RAPTIVA [Suspect]
     Indication: PSORIASIS
     Dates: start: 20060422, end: 20060825
  2. ATHYMIL                  (MIANSERIN HYDROCHLORIDE) [Concomitant]
  3. ZOPICLONE                        (ZOPICLONE) [Concomitant]
  4. VALIUM [Concomitant]

REACTIONS (3)
  - CONDITION AGGRAVATED [None]
  - OSTEONECROSIS [None]
  - PSORIASIS [None]
